FAERS Safety Report 6707946-X (Version None)
Quarter: 2010Q2

REPORT INFORMATION
  Report Type: 
  Country: None (occurrence: None)
  Receive Date: 20100503
  Receipt Date: 20100422
  Transmission Date: 20101027
  Serious: Yes (Other)
  Sender: FDA-Public Use
  Company Number: CA-JNJFOC-20100209558

PATIENT
  Sex: Female

DRUGS (3)
  1. EXTRA STRENGTH TYLENOL COLD DAY [Suspect]
     Indication: NASOPHARYNGITIS
     Dosage: ^1-2 TABLETS EVERY 4-6 HOURS AS PER DOSAGE RECOMMENDATION^
     Route: 048
  2. PAXIL [Interacting]
     Indication: OBSESSIVE-COMPULSIVE DISORDER
  3. MICRONOR [Concomitant]
     Indication: CONTRACEPTION

REACTIONS (10)
  - DRUG INTERACTION [None]
  - DYSKINESIA [None]
  - EXPIRED DRUG ADMINISTERED [None]
  - FEELING ABNORMAL [None]
  - HEART RATE INCREASED [None]
  - INTENTIONAL SELF-INJURY [None]
  - PRODUCT LABEL ISSUE [None]
  - SEROTONIN SYNDROME [None]
  - TREMOR [None]
  - VIOLENCE-RELATED SYMPTOM [None]
